FAERS Safety Report 7918341-X (Version None)
Quarter: 2011Q4

REPORT INFORMATION
  Report Type: 
  Country: None (occurrence: None)
  Receive Date: 20111116
  Receipt Date: 20111114
  Transmission Date: 20120403
  Serious: No
  Sender: FDA-Public Use
  Company Number: US-PFIZER INC-2011278711

PATIENT
  Sex: Female

DRUGS (2)
  1. IBUPROFEN (ADVIL) [Suspect]
     Indication: NASOPHARYNGITIS
     Dosage: 200 MG, UNK
     Route: 048
  2. IBUPROFEN (ADVIL) [Suspect]
     Indication: MALAISE

REACTIONS (5)
  - NAUSEA [None]
  - MALAISE [None]
  - ABDOMINAL DISCOMFORT [None]
  - DIARRHOEA [None]
  - PAIN [None]
